FAERS Safety Report 5647239-5 (Version None)
Quarter: 2008Q1

REPORT INFORMATION
  Report Type: 
  Country: None (occurrence: None)
  Receive Date: 20080303
  Receipt Date: 20080221
  Transmission Date: 20080703
  Serious: Yes (Other)
  Sender: FDA-Public Use
  Company Number: CN-ROCHE-549304

PATIENT
  Age: 56 Year
  Sex: Female
  Weight: 50 kg

DRUGS (3)
  1. ROCALTROL [Suspect]
     Dosage: INDICATION ACALCICOSIS FORM REPORTED AS SOFT CAPSULE
     Route: 048
     Dates: start: 20071001, end: 20080221
  2. NORVASC [Concomitant]
     Indication: HYPERTENSION
     Route: 048
     Dates: start: 20071001
  3. 1 CONCOMITANT DRUG [Concomitant]
     Dosage: DRUG NAME REPORTED AS TCM (JIN SHIU BAO)
     Route: 048
     Dates: start: 20071001

REACTIONS (1)
  - CEREBRAL INFARCTION [None]
